FAERS Safety Report 10786286 (Version 3)
Quarter: 2015Q3

REPORT INFORMATION
  Report Type: Spontaneous
  Country: JP (occurrence: JP)
  Receive Date: 20150211
  Receipt Date: 20150921
  Transmission Date: 20151125
  Serious: Yes (Hospitalization)
  Sender: FDA-Public Use
  Company Number: JP-TEVA-2015-JP-000060J

PATIENT
  Age: 47 Year
  Sex: Male
  Weight: 77 kg

DRUGS (5)
  1. COCARL [Concomitant]
     Active Substance: ACETAMINOPHEN
     Indication: PYREXIA
     Dosage: 1200 MILLIGRAM DAILY;
     Route: 048
     Dates: start: 20150114, end: 20150130
  2. CLINDAMYCIN INJECTION SOLUTION 600MG TAIYO [Suspect]
     Active Substance: CLINDAMYCIN PHOSPHATE
     Indication: SUBCUTANEOUS ABSCESS
     Route: 042
     Dates: start: 20150125, end: 20150129
  3. LANSOPRAZOLE. [Concomitant]
     Active Substance: LANSOPRAZOLE
     Indication: ABDOMINAL DISCOMFORT
     Dosage: 30 MILLIGRAM DAILY;
     Route: 048
     Dates: start: 20150126, end: 20150201
  4. BIOFERMIN R [Concomitant]
     Active Substance: BACILLUS SUBTILIS\LACTOBACILLUS ACIDOPHILUS\STREPTOCOCCUS FAECAIS
     Indication: DIARRHOEA
     Route: 048
     Dates: start: 20150126, end: 20150201
  5. CLAFORAN [Suspect]
     Active Substance: CEFOTAXIME SODIUM
     Indication: SUBCUTANEOUS ABSCESS
     Dosage: 2000 MILLIGRAM DAILY;
     Route: 042
     Dates: start: 20150125, end: 20150129

REACTIONS (2)
  - Drug eruption [Recovering/Resolving]
  - Acute kidney injury [Not Recovered/Not Resolved]

NARRATIVE: CASE EVENT DATE: 20150128
